FAERS Safety Report 14678805 (Version 2)
Quarter: 2018Q2

REPORT INFORMATION
  Report Type: Spontaneous
  Country: BG (occurrence: BG)
  Receive Date: 20180326
  Receipt Date: 20180412
  Transmission Date: 20180711
  Serious: Yes (Other)
  Sender: FDA-Public Use
  Company Number: BG-ROCHE-2095958

PATIENT
  Sex: Female

DRUGS (1)
  1. XOLAIR [Suspect]
     Active Substance: OMALIZUMAB
     Indication: ASTHMA
     Route: 065

REACTIONS (4)
  - Oedema peripheral [Unknown]
  - Erythema [Unknown]
  - Pruritus [Unknown]
  - Cutaneous sarcoidosis [Unknown]

NARRATIVE: CASE EVENT DATE: 2017
